FAERS Safety Report 7537324-5 (Version None)
Quarter: 2011Q2

REPORT INFORMATION
  Report Type: 
  Country: None (occurrence: None)
  Receive Date: 20110609
  Receipt Date: 20110601
  Transmission Date: 20111010
  Serious: No
  Sender: FDA-Public Use
  Company Number: US-PFIZER INC-2011119041

PATIENT
  Sex: Female
  Weight: 51.247 kg

DRUGS (3)
  1. BENADRYL [Concomitant]
     Dosage: 50 MG, UNK
     Route: 048
  2. HYDROCORTISONE [Concomitant]
     Dosage: UNK
  3. ATGAM [Suspect]
     Indication: APLASTIC ANAEMIA
     Dosage: UNK
     Route: 042
     Dates: start: 20110531

REACTIONS (3)
  - PLATELET COUNT DECREASED [None]
  - EXTRAVASATION [None]
  - WHITE BLOOD CELL COUNT DECREASED [None]
